FAERS Safety Report 13376584 (Version 1)
Quarter: 2017Q1

REPORT INFORMATION
  Report Type: Spontaneous
  Country: CN (occurrence: CN)
  Receive Date: 20170328
  Receipt Date: 20170328
  Transmission Date: 20170429
  Serious: Yes (Hospitalization)
  Sender: FDA-Public Use
  Company Number: CN-ALVOGEN-2017-ALVOGEN-091804

PATIENT
  Age: 26 Year
  Sex: Female

DRUGS (3)
  1. DOXORUBICIN HYDROCHLORIDE. [Suspect]
     Active Substance: DOXORUBICIN HYDROCHLORIDE
     Indication: CHONDROSARCOMA
     Route: 041
  2. DEXRAZOXANE. [Concomitant]
     Active Substance: DEXRAZOXANE
     Indication: CHELATION THERAPY
  3. NEDAPLATIN [Concomitant]
     Active Substance: NEDAPLATIN
     Indication: CHONDROSARCOMA

REACTIONS (3)
  - Palpitations [Recovered/Resolved]
  - Sinus bradycardia [Recovered/Resolved]
  - Chest discomfort [Recovered/Resolved]
